FAERS Safety Report 11848613 (Version 1)
Quarter: 2015Q4

REPORT INFORMATION
  Report Type: Report from Study
  Country: SA (occurrence: SA)
  Receive Date: 20151218
  Receipt Date: 20151218
  Transmission Date: 20160305
  Serious: Yes (Other)
  Sender: FDA-Public Use
  Company Number: SA-AEGERION PHARMACEUTICAL INC.-AEGR002137

PATIENT

DRUGS (1)
  1. JUXTAPID [Suspect]
     Active Substance: LOMITAPIDE MESYLATE
     Indication: PRODUCT USED FOR UNKNOWN INDICATION
     Dosage: 20 MG, QD

REACTIONS (4)
  - Cholecystectomy [Unknown]
  - Ill-defined disorder [Unknown]
  - Low density lipoprotein increased [Unknown]
  - Product used for unknown indication [Unknown]
